FAERS Safety Report 15365245 (Version 1)
Quarter: 2018Q3

REPORT INFORMATION
  Report Type: Spontaneous
  Country: US (occurrence: US)
  Receive Date: 20180910
  Receipt Date: 20180910
  Transmission Date: 20181010
  Serious: Yes (Other)
  Sender: FDA-Public Use
  Company Number: US-ACCORD-071404

PATIENT
  Age: 51 Year
  Sex: Female

DRUGS (1)
  1. CLONAZEPAM ACCORD [Suspect]
     Active Substance: CLONAZEPAM
     Indication: PRODUCT USED FOR UNKNOWN INDICATION

REACTIONS (6)
  - Akinesia [Unknown]
  - Nerve injury [Unknown]
  - Muscular weakness [Unknown]
  - Impaired driving ability [Unknown]
  - Feeling abnormal [Unknown]
  - Confusional state [Unknown]
